FAERS Safety Report 11472175 (Version 1)
Quarter: 2015Q3

REPORT INFORMATION
  Report Type: Spontaneous
  Country: US (occurrence: US)
  Receive Date: 20150908
  Receipt Date: 20150908
  Transmission Date: 20151125
  Serious: No
  Sender: FDA-Public Use
  Company Number: US-SA-2015SA128935

PATIENT
  Age: 49 Year
  Sex: Female

DRUGS (2)
  1. SOLOSTAR [Suspect]
     Active Substance: DEVICE
     Indication: TYPE 2 DIABETES MELLITUS
     Dates: start: 201508
  2. TOUJEO [Suspect]
     Active Substance: INSULIN GLARGINE
     Indication: TYPE 2 DIABETES MELLITUS
     Dosage: DOSE: 135 U QAM AND 110 U QHS
     Route: 065
     Dates: start: 201508

REACTIONS (2)
  - Blood glucose increased [Unknown]
  - Drug administration error [Unknown]

NARRATIVE: CASE EVENT DATE: 2015
